FAERS Safety Report 7712686-4 (Version None)
Quarter: 2011Q3

REPORT INFORMATION
  Report Type: 
  Country: None (occurrence: None)
  Receive Date: 20110826
  Receipt Date: 20110816
  Transmission Date: 20111222
  Serious: Yes (Other)
  Sender: FDA-Public Use
  Company Number: BE-JNJFOC-20110809263

PATIENT
  Age: 26 Year
  Sex: Female

DRUGS (3)
  1. MESALAMINE [Concomitant]
     Route: 065
  2. AZATHIOPRINE [Concomitant]
     Route: 065
  3. INFLIXIMAB, RECOMBINANT [Suspect]
     Indication: CROHN'S DISEASE
     Route: 042

REACTIONS (3)
  - MATERNAL EXPOSURE DURING PREGNANCY [None]
  - BLIGHTED OVUM [None]
  - ABORTION SPONTANEOUS [None]
